FAERS Safety Report 25701522 (Version 1)
Quarter: 2025Q3

REPORT INFORMATION
  Report Type: Spontaneous
  Country: PR (occurrence: None)
  Receive Date: 20250819
  Receipt Date: 20250819
  Transmission Date: 20251021
  Serious: No
  Sender: FDA-CTU
  Company Number: None

PATIENT
  Age: 42 Year
  Sex: Female
  Weight: 104.33 kg

DRUGS (1)
  1. CORTICOTROPIN [Suspect]
     Active Substance: CORTICOTROPIN

REACTIONS (8)
  - Increased appetite [None]
  - Weight increased [None]
  - Irritability [None]
  - Abdominal pain upper [None]
  - Headache [None]
  - Burning sensation [None]
  - Injection site inflammation [None]
  - Injection site bruising [None]
